FAERS Safety Report 13989822 (Version 3)
Quarter: 2018Q1

REPORT INFORMATION
  Report Type: Spontaneous
  Country: US (occurrence: US)
  Receive Date: 20170920
  Receipt Date: 20180124
  Transmission Date: 20180508
  Serious: No
  Sender: FDA-Public Use
  Company Number: US-ELI_LILLY_AND_COMPANY-US201708010325

PATIENT
  Age: 83 Year
  Sex: Female

DRUGS (2)
  1. NOVOLOG [Concomitant]
     Active Substance: INSULIN ASPART
     Indication: PRODUCT USED FOR UNKNOWN INDICATION
     Dosage: 1 DF, TID
     Route: 065
  2. BASAGLAR [Suspect]
     Active Substance: INSULIN GLARGINE
     Indication: TYPE 2 DIABETES MELLITUS
     Dosage: 46 IU, UNKNOWN
     Route: 058

REACTIONS (12)
  - Limb discomfort [Unknown]
  - Urinary tract infection [Unknown]
  - Blood glucose increased [Unknown]
  - Blood glucose increased [Unknown]
  - Incorrect dose administered [Unknown]
  - Cardiac disorder [Unknown]
  - Underdose [Unknown]
  - Drug dose omission [Recovered/Resolved]
  - Injection site haemorrhage [Unknown]
  - Bladder disorder [Unknown]
  - Malaise [Unknown]
  - Oedema [Unknown]

NARRATIVE: CASE EVENT DATE: 20170824
